FAERS Safety Report 11192362 (Version 1)
Quarter: 2015Q2

REPORT INFORMATION
  Report Type: Spontaneous
  Country: US (occurrence: None)
  Receive Date: 20150612
  Receipt Date: 20150612
  Transmission Date: 20150821
  Serious: Yes (Other)
  Sender: FDA-Public Use
  Company Number: US-H14001-15-00917

PATIENT
  Age: 60 Year
  Sex: Male

DRUGS (3)
  1. HEPARIN [Suspect]
     Active Substance: HEPARIN SODIUM
     Indication: THROMBOSIS PROPHYLAXIS
     Route: 058
  2. ANTITUBERCULOSIS THERAPY (DRUGS FOR TREATMENT OF TUBERCULOSIS) [Concomitant]
  3. BROAD SPECTRUM ANTIBIOTICS [Concomitant]

REACTIONS (1)
  - Hyperkalaemia [None]
